FAERS Safety Report 15629512 (Version 1)
Quarter: 2018Q4

REPORT INFORMATION
  Report Type: Spontaneous
  Country: US (occurrence: US)
  Receive Date: 20181117
  Receipt Date: 20181117
  Transmission Date: 20190205
  Serious: No
  Sender: FDA-Public Use
  Company Number: US-CELLTRION INC.-2018US023389

PATIENT

DRUGS (1)
  1. INFLECTRA [Suspect]
     Active Substance: INFLIXIMAB-DYYB
     Indication: RHEUMATOID ARTHRITIS
     Dosage: 300MG BY INFUSION AT 0, 2, 6 AND EVERY 8 WEEKS
     Route: 065
     Dates: start: 20181001, end: 20181001

REACTIONS (2)
  - Incorrect dose administered [Unknown]
  - Product dose omission [Unknown]
